FAERS Safety Report 15925148 (Version 4)
Quarter: 2025Q3

REPORT INFORMATION
  Report Type: Spontaneous
  Country: EU (occurrence: EU)
  Receive Date: 20190206
  Receipt Date: 20250912
  Transmission Date: 20251021
  Serious: Yes (Life-Threatening, Hospitalization, Other)
  Sender: AUROBINDO
  Company Number: None

PATIENT
  Age: 62 Year
  Sex: Male

DRUGS (11)
  1. CARBAMAZEPINE [Suspect]
     Active Substance: CARBAMAZEPINE
     Indication: Behaviour disorder
     Dosage: 400 MILLIGRAM, TWO TIMES A DAY
     Route: 065
  2. CARBAMAZEPINE [Suspect]
     Active Substance: CARBAMAZEPINE
     Indication: Alcoholism
     Dosage: 400 MILLIGRAM, ONCE A DAY
     Route: 065
  3. CARBAMAZEPINE [Suspect]
     Active Substance: CARBAMAZEPINE
     Indication: Epilepsy
  4. DIAZEPAM [Suspect]
     Active Substance: DIAZEPAM
     Indication: Alcoholism
     Dosage: 10 MILLIGRAM, ONCE A DAY
     Route: 065
  5. DIAZEPAM [Suspect]
     Active Substance: DIAZEPAM
     Indication: Behaviour disorder
     Dosage: 10 MILLIGRAM, 3 TIMES A DAY
     Route: 065
  6. DIAZEPAM [Suspect]
     Active Substance: DIAZEPAM
     Indication: Epilepsy
     Route: 065
  7. PHENYTOIN [Suspect]
     Active Substance: PHENYTOIN
     Indication: Behaviour disorder
     Dosage: 100 MILLIGRAM, TWO TIMES A DAY
     Route: 065
  8. PHENYTOIN [Suspect]
     Active Substance: PHENYTOIN
     Indication: Alcoholism
     Dosage: 100 MILLIGRAM, ONCE A DAY
     Route: 065
  9. TIAPRIDE [Suspect]
     Active Substance: TIAPRIDE
     Indication: Behaviour disorder
     Dosage: 100 MILLIGRAM, TWO TIMES A DAY
     Route: 065
  10. TIAPRIDE [Suspect]
     Active Substance: TIAPRIDE
     Indication: Alcoholism
     Dosage: 100 MILLIGRAM, ONCE A DAY
     Route: 065
  11. TIAPRIDE [Suspect]
     Active Substance: TIAPRIDE
     Indication: Epilepsy

REACTIONS (14)
  - Neuroleptic malignant syndrome [Recovered/Resolved]
  - Altered state of consciousness [Recovering/Resolving]
  - Myoclonus [Recovering/Resolving]
  - Dystonia [Unknown]
  - Muscle rigidity [Unknown]
  - Renal disorder [Recovered/Resolved]
  - Enzyme level increased [Unknown]
  - Dyskinesia [Unknown]
  - Leukocytosis [Unknown]
  - Musculoskeletal stiffness [Recovered/Resolved]
  - Toxicity to various agents [Unknown]
  - Rhabdomyolysis [Recovered/Resolved]
  - Atrophy [Unknown]
  - Gait disturbance [Unknown]
